FAERS Safety Report 8807615 (Version 1)
Quarter: 2012Q4

REPORT INFORMATION
  Report Type: 
  Country: GB (occurrence: GB)
  Receive Date: 20120925
  Receipt Date: 20120925
  Transmission Date: 20130627
  Serious: Yes (Death, Hospitalization)
  Sender: FDA-Public Use
  Company Number: GB-PFIZER INC-2003126080

PATIENT
  Age: 24 Year
  Sex: Female
  Weight: 59.5 kg

DRUGS (7)
  1. SERTRALINE HCL [Suspect]
     Dosage: 14 g, single
     Route: 048
     Dates: start: 20031122
  2. TENORMIN [Suspect]
     Dosage: 350 mg, single
     Route: 048
     Dates: start: 20031122
  3. PARACETAMOL [Suspect]
     Dosage: 79 DF, single
     Route: 048
     Dates: start: 20031122
  4. ASPIRIN [Suspect]
     Dosage: 79 DF, single
     Route: 048
     Dates: start: 20031122
  5. EFEXOR XL [Suspect]
     Dosage: 75mg daily
     Route: 048
     Dates: start: 20010403, end: 2001
  6. EFEXOR XL [Suspect]
     Dosage: 150mg daily
     Route: 048
     Dates: start: 20010703
  7. EFEXOR XL [Suspect]
     Dosage: 600 mg, single
     Route: 048
     Dates: start: 20031122

REACTIONS (18)
  - Intentional overdose [Fatal]
  - Completed suicide [Fatal]
  - Cardiac arrest [Fatal]
  - Serotonin syndrome [Unknown]
  - Depressed level of consciousness [Unknown]
  - Grand mal convulsion [Unknown]
  - Coma [Unknown]
  - Ventricular tachycardia [Unknown]
  - Nausea [Unknown]
  - Hypotension [Unknown]
  - Retching [Unknown]
  - Malaise [Unknown]
  - Cyanosis [Unknown]
  - Peripheral coldness [Unknown]
  - Personality disorder [Unknown]
  - Agitation [Unknown]
  - Disorientation [Unknown]
  - Tachycardia [Unknown]
